FAERS Safety Report 4974518-7 (Version None)
Quarter: 2006Q2

REPORT INFORMATION
  Report Type: 
  Country: None (occurrence: None)
  Receive Date: 20060410
  Receipt Date: 20060201
  Transmission Date: 20061013
  Serious: Yes (Other)
  Sender: FDA-Public Use
  Company Number: 2006020700

PATIENT
  Age: 80 Year
  Sex: Male

DRUGS (11)
  1. IRINOTECAN HCL [Suspect]
     Indication: COLORECTAL CANCER
     Dosage: 120 MG (40 MG, 1 IN 2 WEEKS), INTRAVENOUS
     Route: 042
     Dates: start: 20051206, end: 20051221
  2. VEEN-F (CALCIUM CHLORIDE ANHYDROUS, MAGNESIUM CHLORIDE ANHYDROUS, POTA [Concomitant]
  3. MUCOSTA (REBAMIPIDE) [Concomitant]
  4. URSO 250 [Concomitant]
  5. RHYTHMY (RILMAZAFONE) [Concomitant]
  6. MAGNESIUM OXIDE [Concomitant]
  7. LASIX [Concomitant]
  8. LOXONIN (LOXOPROFEN SODIUM) [Concomitant]
  9. NOVOLIN R [Concomitant]
  10. VOLTAREN [Concomitant]
  11. BIOFERMIN (BACILLUS SUBTILIS, LACTOBACILLUS ACIDOPHILUS, STREPTOCOCCUS [Concomitant]

REACTIONS (1)
  - PLEURAL EFFUSION [None]
